FAERS Safety Report 17012227 (Version 1)
Quarter: 2019Q4

REPORT INFORMATION
  Report Type: Spontaneous
  Country: FR (occurrence: FR)
  Receive Date: 20191108
  Receipt Date: 20191108
  Transmission Date: 20200122
  Serious: Yes (Death)
  Sender: FDA-Public Use
  Company Number: FR-CELGENEUS-FRA-20191100302

PATIENT
  Age: 73 Year
  Sex: Female
  Weight: 67 kg

DRUGS (7)
  1. ACICLOVIR [Concomitant]
     Active Substance: ACYCLOVIR
     Indication: ANTIVIRAL TREATMENT
     Route: 065
     Dates: end: 20191001
  2. APR-246. [Concomitant]
     Active Substance: APR-246
     Indication: MYELODYSPLASTIC SYNDROME
     Route: 041
     Dates: start: 20190625, end: 20190829
  3. WELLVONE [Concomitant]
     Active Substance: ATOVAQUONE
     Indication: INFECTION PROPHYLAXIS
     Route: 065
     Dates: end: 20191001
  4. AZACITIDINE. [Suspect]
     Active Substance: AZACITIDINE
     Indication: MYELODYSPLASTIC SYNDROME
     Route: 058
     Dates: start: 20190701, end: 20190906
  5. APR-246. [Concomitant]
     Active Substance: APR-246
     Dosage: 2250 MILLIGRAM
     Route: 041
     Dates: start: 20190828
  6. GABAPENTINE [Concomitant]
     Active Substance: GABAPENTIN
     Indication: EPILEPSY
     Route: 065
     Dates: end: 20191001
  7. LEVOTHYROXINE. [Concomitant]
     Active Substance: LEVOTHYROXINE
     Indication: HYPOTHYROIDISM
     Route: 065
     Dates: start: 2017, end: 20191001

REACTIONS (2)
  - Gastrointestinal haemorrhage [Fatal]
  - Septic shock [Fatal]

NARRATIVE: CASE EVENT DATE: 20191001
